FAERS Safety Report 25337525 (Version 1)
Quarter: 2025Q2

REPORT INFORMATION
  Report Type: Spontaneous
  Country: FR (occurrence: FR)
  Receive Date: 20250520
  Receipt Date: 20250520
  Transmission Date: 20250717
  Serious: Yes (Hospitalization)
  Sender: MYLAN
  Company Number: None

PATIENT
  Age: 49 Year
  Sex: Female
  Weight: 67 kg

DRUGS (20)
  1. PREDNISONE [Suspect]
     Active Substance: PREDNISONE
     Indication: Primary mediastinal large B-cell lymphoma
     Dosage: 40 MILLIGRAM/SQ. METER, Q3W
     Dates: start: 2011, end: 20120417
  2. PREDNISONE [Suspect]
     Active Substance: PREDNISONE
     Dosage: 40 MILLIGRAM/SQ. METER, Q3W
     Route: 048
     Dates: start: 2011, end: 20120417
  3. PREDNISONE [Suspect]
     Active Substance: PREDNISONE
     Dosage: 40 MILLIGRAM/SQ. METER, Q3W
     Route: 048
     Dates: start: 2011, end: 20120417
  4. PREDNISONE [Suspect]
     Active Substance: PREDNISONE
     Dosage: 40 MILLIGRAM/SQ. METER, Q3W
     Dates: start: 2011, end: 20120417
  5. RITUXIMAB [Suspect]
     Active Substance: RITUXIMAB
     Indication: Primary mediastinal large B-cell lymphoma
     Dosage: 375 MILLIGRAM/SQ. METER, Q3W (8 CYCLES)
     Dates: start: 2011, end: 20120417
  6. RITUXIMAB [Suspect]
     Active Substance: RITUXIMAB
     Dosage: 375 MILLIGRAM/SQ. METER, Q3W (8 CYCLES)
     Route: 042
     Dates: start: 2011, end: 20120417
  7. RITUXIMAB [Suspect]
     Active Substance: RITUXIMAB
     Dosage: 375 MILLIGRAM/SQ. METER, Q3W (8 CYCLES)
     Route: 042
     Dates: start: 2011, end: 20120417
  8. RITUXIMAB [Suspect]
     Active Substance: RITUXIMAB
     Dosage: 375 MILLIGRAM/SQ. METER, Q3W (8 CYCLES)
     Dates: start: 2011, end: 20120417
  9. CYCLOPHOSPHAMIDE [Suspect]
     Active Substance: CYCLOPHOSPHAMIDE
     Indication: Primary mediastinal large B-cell lymphoma
     Dosage: 750 MILLIGRAM/SQ. METER, Q3W (8 CYCLES)
     Dates: start: 2011, end: 20120417
  10. CYCLOPHOSPHAMIDE [Suspect]
     Active Substance: CYCLOPHOSPHAMIDE
     Dosage: 750 MILLIGRAM/SQ. METER, Q3W (8 CYCLES)
     Route: 042
     Dates: start: 2011, end: 20120417
  11. CYCLOPHOSPHAMIDE [Suspect]
     Active Substance: CYCLOPHOSPHAMIDE
     Dosage: 750 MILLIGRAM/SQ. METER, Q3W (8 CYCLES)
     Route: 042
     Dates: start: 2011, end: 20120417
  12. CYCLOPHOSPHAMIDE [Suspect]
     Active Substance: CYCLOPHOSPHAMIDE
     Dosage: 750 MILLIGRAM/SQ. METER, Q3W (8 CYCLES)
     Dates: start: 2011, end: 20120417
  13. DOXORUBICIN [Suspect]
     Active Substance: DOXORUBICIN
     Indication: Primary mediastinal large B-cell lymphoma
     Dosage: 50 MILLIGRAM/SQ. METER, Q3W (8 CYCLES)
     Dates: start: 2011, end: 20120417
  14. DOXORUBICIN [Suspect]
     Active Substance: DOXORUBICIN
     Dosage: 50 MILLIGRAM/SQ. METER, Q3W (8 CYCLES)
     Route: 042
     Dates: start: 2011, end: 20120417
  15. DOXORUBICIN [Suspect]
     Active Substance: DOXORUBICIN
     Dosage: 50 MILLIGRAM/SQ. METER, Q3W (8 CYCLES)
     Route: 042
     Dates: start: 2011, end: 20120417
  16. DOXORUBICIN [Suspect]
     Active Substance: DOXORUBICIN
     Dosage: 50 MILLIGRAM/SQ. METER, Q3W (8 CYCLES)
     Dates: start: 2011, end: 20120417
  17. VINCRISTINE SULFATE [Suspect]
     Active Substance: VINCRISTINE SULFATE
     Indication: Primary mediastinal large B-cell lymphoma
     Dosage: 1.4 MILLIGRAM/SQ. METER, Q3W
     Dates: start: 2011, end: 20120417
  18. VINCRISTINE SULFATE [Suspect]
     Active Substance: VINCRISTINE SULFATE
     Dosage: 1.4 MILLIGRAM/SQ. METER, Q3W
     Route: 042
     Dates: start: 2011, end: 20120417
  19. VINCRISTINE SULFATE [Suspect]
     Active Substance: VINCRISTINE SULFATE
     Dosage: 1.4 MILLIGRAM/SQ. METER, Q3W
     Route: 042
     Dates: start: 2011, end: 20120417
  20. VINCRISTINE SULFATE [Suspect]
     Active Substance: VINCRISTINE SULFATE
     Dosage: 1.4 MILLIGRAM/SQ. METER, Q3W
     Dates: start: 2011, end: 20120417

REACTIONS (2)
  - Ventricular tachycardia [Recovered/Resolved]
  - Ventricular dysfunction [Not Recovered/Not Resolved]

NARRATIVE: CASE EVENT DATE: 20241231
